FAERS Safety Report 17218563 (Version 1)
Quarter: 2019Q4

REPORT INFORMATION
  Report Type: Spontaneous
  Country: GB (occurrence: GB)
  Receive Date: 20191231
  Receipt Date: 20191231
  Transmission Date: 20200122
  Serious: Yes (Other)
  Sender: FDA-Public Use
  Company Number: GB-UCBSA-2019055801

PATIENT
  Sex: Female

DRUGS (2)
  1. TEGRETOL [Concomitant]
     Active Substance: CARBAMAZEPINE
     Indication: EPILEPSY
     Dosage: UNK
  2. BRIVIACT [Suspect]
     Active Substance: BRIVARACETAM
     Indication: EPILEPSY
     Dosage: 25 MILLIGRAM, ONCE DAILY (QD)
     Route: 048
     Dates: start: 201912, end: 201912

REACTIONS (5)
  - Feeling abnormal [Recovering/Resolving]
  - Disturbance in attention [Recovering/Resolving]
  - Tearfulness [Recovering/Resolving]
  - Epilepsy [Recovering/Resolving]
  - Intentional product misuse [Unknown]

NARRATIVE: CASE EVENT DATE: 201912
